FAERS Safety Report 5797662-3 (Version None)
Quarter: 2008Q3

REPORT INFORMATION
  Report Type: 
  Country: None (occurrence: None)
  Receive Date: 20080702
  Receipt Date: 20080624
  Transmission Date: 20090109
  Serious: Yes (Other)
  Sender: FDA-Public Use
  Company Number: GB-JNJFOC-20080605842

PATIENT
  Age: 65 Year
  Sex: Male
  Weight: 64 kg

DRUGS (6)
  1. REMICADE [Suspect]
     Indication: RHEUMATOID ARTHRITIS
     Route: 042
  2. ATENOLOL [Concomitant]
  3. FOLIC ACID [Concomitant]
  4. MISOPROSTOL [Concomitant]
  5. RABEPRAZOLE SODIUM [Concomitant]
  6. METHOTREXATE [Concomitant]

REACTIONS (1)
  - SKIN CANCER [None]
